FAERS Safety Report 23644429 (Version 2)
Quarter: 2024Q3

REPORT INFORMATION
  Report Type: Spontaneous
  Country: GB (occurrence: GB)
  Receive Date: 20240318
  Receipt Date: 20240913
  Transmission Date: 20241016
  Serious: Yes (Life-Threatening, Disabling, Other)
  Sender: TORRENT
  Company Number: None

PATIENT
  Age: 62 Year
  Sex: Male
  Weight: 80 kg

DRUGS (1)
  1. ESCITALOPRAM [Suspect]
     Active Substance: ESCITALOPRAM OXALATE
     Indication: Social anxiety disorder
     Dosage: 5MG ONCE DAILY
     Route: 065
     Dates: start: 20240104

REACTIONS (2)
  - Abnormal dreams [Not Recovered/Not Resolved]
  - Anxiety [Unknown]

NARRATIVE: CASE EVENT DATE: 20240306
